FAERS Safety Report 20235658 (Version 1)
Quarter: 2021Q4

REPORT INFORMATION
  Report Type: Spontaneous
  Country: US (occurrence: None)
  Receive Date: 20211228
  Receipt Date: 20211228
  Transmission Date: 20220303
  Serious: No
  Sender: FDA-Public Use
  Company Number: US-Hikma Pharmaceuticals USA Inc.-US-H14001-21-02447

PATIENT
  Sex: Female
  Weight: 76.2 kg

DRUGS (3)
  1. BALSALAZIDE [Suspect]
     Active Substance: BALSALAZIDE
     Indication: Product used for unknown indication
     Dosage: UNKNOWN
     Route: 065
     Dates: start: 2011
  2. MESALAMINE [Suspect]
     Active Substance: MESALAMINE
     Indication: Product used for unknown indication
     Dosage: UNKNOWN
     Route: 065
     Dates: start: 2011, end: 2012
  3. INFLECTRA [Suspect]
     Active Substance: INFLIXIMAB-DYYB
     Indication: Haematochezia
     Dosage: EVERY 8 WEEKS
     Route: 041
     Dates: start: 2019, end: 2020

REACTIONS (2)
  - Drug ineffective [Unknown]
  - Weight increased [Unknown]
